FAERS Safety Report 9415612 (Version 1)
Quarter: 2013Q3

REPORT INFORMATION
  Report Type: Spontaneous
  Country: FR (occurrence: FR)
  Receive Date: 20130723
  Receipt Date: 20130723
  Transmission Date: 20140515
  Serious: Yes (Life-Threatening)
  Sender: FDA-Public Use
  Company Number: FR-PFIZER INC-2013210058

PATIENT
  Age: 82 Year
  Sex: Female

DRUGS (13)
  1. SOLU-MEDROL [Suspect]
     Dosage: 40 MG, 1X/DAY
     Route: 042
     Dates: start: 20130619
  2. LOVENOX [Suspect]
     Indication: ATRIAL FIBRILLATION
     Dosage: 0.4 ML, 1X/DAY
     Route: 058
     Dates: start: 20130619, end: 20130624
  3. TAVANIC [Suspect]
     Indication: LUNG DISORDER
     Dosage: 500 MG (2 DF), 1X/DAY
     Route: 042
     Dates: start: 20130619
  4. INEXIUM [Suspect]
     Indication: GASTROOESOPHAGEAL REFLUX DISEASE
     Dosage: 40 MG, 1X/DAY
     Route: 042
     Dates: start: 20130619
  5. KALEORID [Concomitant]
     Indication: HYPOKALAEMIA
     Dosage: 1200 MG (2 DF), 1X/DAY
     Route: 048
  6. DEBRIDAT [Concomitant]
     Dosage: 100 MG, 1X/DAY
     Route: 048
  7. ZANIDIP [Concomitant]
     Dosage: 1 DF DAILY
  8. CORDARONE [Concomitant]
     Dosage: 1 DF DAILY
  9. CALCIDOSE VITAMINE D [Concomitant]
     Dosage: 2 DF DAILY
  10. KARDEGIC [Concomitant]
     Dosage: 75 MG DAILY
  11. TRANSIPEG [Concomitant]
     Dosage: 1 DF DAILY
  12. PARAFFIN [Concomitant]
     Dosage: 2 DF DAILY
  13. SODIUM CHLORIDE [Concomitant]
     Dosage: 9/1000, 1 L, ALTERNATE DAY
     Route: 058

REACTIONS (2)
  - Heparin-induced thrombocytopenia [Unknown]
  - Venous thrombosis limb [Unknown]
